FAERS Safety Report 10459158 (Version 3)
Quarter: 2014Q4

REPORT INFORMATION
  Report Type: Spontaneous
  Country: BE (occurrence: BE)
  Receive Date: 20140917
  Receipt Date: 20141212
  Transmission Date: 20150528
  Serious: Yes (Hospitalization, Other)
  Sender: FDA-Public Use
  Company Number: BE-JNJFOC-20070501699

PATIENT

DRUGS (7)
  1. 6-MERCAPTOPURINE [Concomitant]
     Active Substance: MERCAPTOPURINE
     Route: 065
  2. SYSTEMIC CORTICOSTEROIDS [Concomitant]
     Route: 065
  3. INFLIXIMAB [Suspect]
     Active Substance: INFLIXIMAB
     Indication: FISTULA
     Route: 042
  4. AZATHIOPRINE. [Concomitant]
     Active Substance: AZATHIOPRINE
     Route: 065
  5. INFLIXIMAB [Suspect]
     Active Substance: INFLIXIMAB
     Indication: CROHN^S DISEASE
     Route: 042
  6. INFLIXIMAB [Suspect]
     Active Substance: INFLIXIMAB
     Indication: INFLAMMATORY BOWEL DISEASE
     Route: 042
  7. METHOTREXATE [Concomitant]
     Active Substance: METHOTREXATE
     Route: 065

REACTIONS (13)
  - Fibrosis [Unknown]
  - Skin infection [Unknown]
  - Respiratory tract infection [Unknown]
  - Tuberculin test positive [Unknown]
  - Anal abscess [Unknown]
  - Herpes zoster [Unknown]
  - Infection [Unknown]
  - Pelvic inflammatory disease [Unknown]
  - Appendicitis [Unknown]
  - Gastroenteritis bacterial [Unknown]
  - Abdominal abscess [Unknown]
  - Pneumonia [Unknown]
  - Cytomegalovirus infection [Unknown]
